FAERS Safety Report 6255458-2 (Version None)
Quarter: 2009Q3

REPORT INFORMATION
  Report Type: 
  Country: None (occurrence: None)
  Receive Date: 20090702
  Receipt Date: 20090623
  Transmission Date: 20100115
  Serious: Yes (Other)
  Sender: FDA-Public Use
  Company Number: US-BAXTER-2009BH006016

PATIENT
  Age: 59 Year
  Sex: Female

DRUGS (11)
  1. IFOSFAMIDE [Suspect]
     Indication: METASTATIC NEOPLASM
     Route: 042
     Dates: start: 20090413
  2. IFOSFAMIDE [Suspect]
     Route: 042
     Dates: start: 20090413
  3. DOXORUBICIN HCL [Suspect]
     Indication: METASTATIC NEOPLASM
     Dates: start: 20090413
  4. DEXAMETHASONE [Suspect]
     Indication: DRUG USE FOR UNKNOWN INDICATION
     Route: 048
     Dates: start: 20090413
  5. DEXAMETHASONE [Suspect]
     Route: 048
     Dates: start: 20090414
  6. DEXAMETHASONE [Suspect]
     Route: 048
     Dates: start: 20090415
  7. KYTRIL [Suspect]
     Indication: DRUG USE FOR UNKNOWN INDICATION
     Dates: start: 20090413
  8. ANTIEMETIC [Suspect]
     Indication: DRUG USE FOR UNKNOWN INDICATION
     Route: 065
     Dates: start: 20090413
  9. ANTIEMETIC [Suspect]
     Route: 065
     Dates: start: 20090414
  10. ANTIEMETIC [Suspect]
     Route: 065
     Dates: start: 20090415
  11. DILAUDID [Concomitant]
     Indication: DRUG USE FOR UNKNOWN INDICATION
     Route: 065

REACTIONS (6)
  - AGGRESSION [None]
  - AGITATION [None]
  - CONFUSIONAL STATE [None]
  - DRUG TOXICITY [None]
  - HALLUCINATION [None]
  - PSYCHOTIC DISORDER [None]
